FAERS Safety Report 25500196 (Version 1)
Quarter: 2025Q3

REPORT INFORMATION
  Report Type: Spontaneous
  Country: EU (occurrence: EU)
  Receive Date: 20250701
  Receipt Date: 20250701
  Transmission Date: 20251020
  Serious: Yes (Life-Threatening, Other)
  Sender: SANOFI AVENTIS
  Company Number: None

PATIENT
  Age: 39 Year
  Sex: Female
  Weight: 75 kg

DRUGS (1)
  1. DUPIXENT [Suspect]
     Active Substance: DUPILUMAB
     Indication: Asthma
     Route: 003
     Dates: start: 20250617, end: 20250617

REACTIONS (3)
  - Rash maculo-papular [Recovered/Resolved]
  - Bronchospasm [Recovered/Resolved]
  - Hypersensitivity [Recovered/Resolved]

NARRATIVE: CASE EVENT DATE: 20250617
